FAERS Safety Report 10168216 (Version 2)
Quarter: 2014Q2

REPORT INFORMATION
  Report Type: Report from Study
  Country: CL (occurrence: CL)
  Receive Date: 20140512
  Receipt Date: 20140512
  Transmission Date: 20141212
  Serious: Yes (Other)
  Sender: FDA-Public Use
  Company Number: PHHY2014CL042823

PATIENT
  Sex: Female

DRUGS (1)
  1. TAREG [Suspect]
     Indication: HYPERTENSION
     Dosage: 160 MG, DAILY

REACTIONS (4)
  - Blood pressure increased [Recovering/Resolving]
  - Electrocardiogram ambulatory abnormal [Unknown]
  - Eye disorder [Unknown]
  - Headache [Unknown]
